FAERS Safety Report 8953857 (Version 1)
Quarter: 2012Q4

REPORT INFORMATION
  Report Type: 
  Country: US (occurrence: US)
  Receive Date: 20121206
  Receipt Date: 20121206
  Transmission Date: 20130627
  Serious: Yes (Other)
  Sender: FDA-Public Use
  Company Number: CHPA2012US023841

PATIENT
  Age: 66 Year
  Sex: Female

DRUGS (2)
  1. EXCEDRIN EXTRA STRENGTH [Suspect]
     Indication: HEADACHE
     Dosage: 1 pill as needed
     Route: 048
  2. OXYCONTIN [Concomitant]
     Indication: HEADACHE
     Dosage: UNK
     Route: 048
     Dates: start: 2000

REACTIONS (3)
  - Bronchitis [Not Recovered/Not Resolved]
  - Incorrect dose administered [Unknown]
  - Disease recurrence [Recovered/Resolved]
